FAERS Safety Report 11160193 (Version 2)
Quarter: 2015Q2

REPORT INFORMATION
  Report Type: Spontaneous
  Country: TW (occurrence: TW)
  Receive Date: 20150603
  Receipt Date: 20150605
  Transmission Date: 20150821
  Serious: Yes (Other)
  Sender: FDA-Public Use
  Company Number: TW-ABBVIE-15P-153-1403274-00

PATIENT
  Age: 54 Year
  Sex: Female

DRUGS (2)
  1. PRIMOLUT-NOR [Concomitant]
     Indication: PRODUCT USED FOR UNKNOWN INDICATION
  2. LEUPLIN SR [Suspect]
     Active Substance: LEUPROLIDE ACETATE
     Indication: LEIOMYOMA
     Route: 058
     Dates: start: 20150202, end: 20150525

REACTIONS (2)
  - Injection site warmth [Recovered/Resolved]
  - Injection site granuloma [Recovered/Resolved]
